FAERS Safety Report 4825349-X (Version None)
Quarter: 2005Q4

REPORT INFORMATION
  Report Type: 
  Country: None (occurrence: None)
  Receive Date: 20051111
  Receipt Date: 20051013
  Transmission Date: 20060501
  Serious: Yes (Hospitalization)
  Sender: FDA-Public Use
  Company Number: PHFR2005GB03400

PATIENT
  Age: 39 Year
  Sex: Female

DRUGS (4)
  1. NEORAL [Suspect]
     Indication: HYPERSENSITIVITY
     Dosage: 100 MG, BID
     Route: 065
  2. CETIRIZINE HCL [Concomitant]
     Indication: HYPERSENSITIVITY
     Dosage: 40MG DAILY
     Route: 048
  3. PREDNISOLONE [Concomitant]
     Indication: HYPERSENSITIVITY
     Dosage: 30MG DAILY
     Route: 048
  4. EPIPEN [Concomitant]
     Indication: ANAPHYLACTIC REACTION
     Dosage: 0.3MG PEN
     Route: 030

REACTIONS (3)
  - ACUTE CORONARY SYNDROME [None]
  - ARTERIOSPASM CORONARY [None]
  - CHEST PAIN [None]
